FAERS Safety Report 5355516-0 (Version None)
Quarter: 2007Q2

REPORT INFORMATION
  Report Type: 
  Country: None (occurrence: None)
  Receive Date: 20070613
  Receipt Date: 20070606
  Transmission Date: 20071010
  Serious: Yes (Life-Threatening)
  Sender: FDA-Public Use
  Company Number: ES-AVENTIS-200712801EU

PATIENT
  Age: 83 Year
  Sex: Female

DRUGS (2)
  1. SEGURIL                            /00032601/ [Suspect]
     Dosage: DOSE: UNKNOWN DOSAGE
     Dates: end: 20060608
  2. DIGOXIN [Suspect]
     Dosage: DOSE: UNKNOWN DOSAGE
     Dates: end: 20060605

REACTIONS (3)
  - BRADYCARDIA [None]
  - DRUG INTERACTION [None]
  - HYPERKALAEMIA [None]
